FAERS Safety Report 8488591-5 (Version None)
Quarter: 2012Q3

REPORT INFORMATION
  Report Type: 
  Country: None (occurrence: None)
  Receive Date: 20120705
  Receipt Date: 20120627
  Transmission Date: 20120928
  Serious: Yes (Other)
  Sender: FDA-Public Use
  Company Number: PHHY2012MX035842

PATIENT
  Age: 26 Year
  Sex: Female

DRUGS (4)
  1. CLOZAPINE [Suspect]
     Dosage: 100 MG, DAILY
  2. OLANZAPINE [Suspect]
     Indication: PSYCHOMOTOR HYPERACTIVITY
  3. ZUCLOPENTHIXOL [Suspect]
     Indication: AGGRESSION
  4. RISPERIDONE [Suspect]
     Dosage: 2 MG, UNK

REACTIONS (3)
  - CONDITION AGGRAVATED [None]
  - CATATONIA [None]
  - NEUTROPENIA [None]
